FAERS Safety Report 19006240 (Version 1)
Quarter: 2021Q1

REPORT INFORMATION
  Report Type: Spontaneous
  Country: NL (occurrence: NL)
  Receive Date: 20210315
  Receipt Date: 20210315
  Transmission Date: 20210420
  Serious: Yes (Hospitalization, Other)
  Sender: FDA-Public Use
  Company Number: NL-AUROBINDO-AUR-APL-2019-080634

PATIENT
  Age: 32 Year
  Sex: Male

DRUGS (1)
  1. DOLOPHINE [Suspect]
     Active Substance: METHADONE HYDROCHLORIDE
     Indication: PRODUCT USED FOR UNKNOWN INDICATION
     Dosage: UNK
     Route: 065

REACTIONS (17)
  - Psychotic disorder [Recovered/Resolved]
  - Muscle contracture [Recovered/Resolved]
  - Overdose [Unknown]
  - Hypoxia [Unknown]
  - Empyema [Unknown]
  - Anxiety [Unknown]
  - Muscle rigidity [Recovered/Resolved]
  - Malignant catatonia [Recovered/Resolved]
  - Coma [Unknown]
  - Staphylococcal infection [Unknown]
  - Restlessness [Unknown]
  - Agitation [Unknown]
  - Posturing [Recovered/Resolved]
  - Tachycardia [Recovered/Resolved]
  - Echolalia [Recovered/Resolved]
  - Hyperhidrosis [Recovered/Resolved]
  - Pyrexia [Recovered/Resolved]
